FAERS Safety Report 11530947 (Version 1)
Quarter: 2015Q3

REPORT INFORMATION
  Report Type: Spontaneous
  Country: US (occurrence: US)
  Receive Date: 20150903
  Receipt Date: 20150903
  Transmission Date: 20151125
  Serious: No
  Sender: FDA-Public Use
  Company Number: US-ELI_LILLY_AND_COMPANY-US201307000755

PATIENT
  Sex: Male

DRUGS (4)
  1. FOCALIN [Concomitant]
     Active Substance: DEXMETHYLPHENIDATE HYDROCHLORIDE
     Dosage: UNK, UNKNOWN
     Route: 065
  2. XANAX [Concomitant]
     Active Substance: ALPRAZOLAM
     Dosage: UNK, UNKNOWN
     Route: 065
  3. CYMBALTA [Suspect]
     Active Substance: DULOXETINE HYDROCHLORIDE
     Indication: ANXIETY
     Dosage: 30 MG, QD
     Route: 065
     Dates: start: 2011
  4. CYMBALTA [Suspect]
     Active Substance: DULOXETINE HYDROCHLORIDE
     Dosage: 20 MG, QD
     Route: 065

REACTIONS (11)
  - Abdominal pain upper [Unknown]
  - Underdose [Unknown]
  - Heart rate increased [Unknown]
  - Drug withdrawal syndrome [Unknown]
  - Heart rate increased [Unknown]
  - Anxiety [Unknown]
  - Feeling abnormal [Unknown]
  - Agitation [Unknown]
  - Small intestinal bacterial overgrowth [Unknown]
  - Confusional state [Unknown]
  - Anxiety [Unknown]

NARRATIVE: CASE EVENT DATE: 201206
